FAERS Safety Report 14846822 (Version 4)
Quarter: 2018Q3

REPORT INFORMATION
  Report Type: Spontaneous
  Country: ES (occurrence: ES)
  Receive Date: 20180504
  Receipt Date: 20180905
  Transmission Date: 20181010
  Serious: Yes (Hospitalization)
  Sender: FDA-Public Use
  Company Number: ES-PFIZER INC-2018183557

PATIENT
  Age: 8 Year
  Sex: Male
  Weight: 30 kg

DRUGS (8)
  1. VINCRISTINE SULFATE. [Suspect]
     Active Substance: VINCRISTINE SULFATE
     Indication: B-CELL TYPE ACUTE LEUKAEMIA
     Dosage: 1.7 MG, UNK
     Route: 042
     Dates: start: 20171214, end: 20180104
  2. METHYLPREDNISOLONE SODIUM SUCCINATE. [Interacting]
     Active Substance: METHYLPREDNISOLONE SODIUM SUCCINATE
     Indication: B-CELL TYPE ACUTE LEUKAEMIA
     Dosage: 23 MG, 3X/DAY (EVERY 8 HOURS)
     Route: 042
     Dates: start: 20171207, end: 20180110
  3. ONCASPAR [Interacting]
     Active Substance: PEGASPARGASE
     Indication: B-CELL TYPE ACUTE LEUKAEMIA
     Dosage: 1130 IU, 1X/DAY
     Route: 030
     Dates: start: 20171218, end: 20180101
  4. CITARABINA [Interacting]
     Active Substance: CYTARABINE
     Indication: B-CELL TYPE ACUTE LEUKAEMIA
     Dosage: 83 MG, UNK
     Route: 037
     Dates: start: 20171217, end: 20180127
  5. DAUNORUBICINA [Concomitant]
     Active Substance: DAUNORUBICIN HYDROCHLORIDE
     Indication: B-CELL TYPE ACUTE LEUKAEMIA
     Dosage: 34 MG, UNK
     Route: 042
     Dates: start: 20171214, end: 20180104
  6. METHOTREXATE SODIUM. [Interacting]
     Active Substance: METHOTREXATE SODIUM
     Indication: B-CELL TYPE ACUTE LEUKAEMIA
     Dosage: 12 MG, UNK
     Route: 037
     Dates: start: 20171207, end: 20180108
  7. FLEBOGAMMA DIF [Interacting]
     Active Substance: HUMAN IMMUNOGLOBULIN G
     Indication: MEDICATION ERROR
     Dosage: 10 MG, SINGLE
     Route: 042
     Dates: start: 20171228, end: 20171228
  8. HIDROCORTISONA [Concomitant]
     Active Substance: HYDROCORTISONE
     Indication: B-CELL TYPE ACUTE LEUKAEMIA
     Dosage: 20 MG, UNK
     Route: 037
     Dates: start: 20171207, end: 20180108

REACTIONS (2)
  - Cerebral venous thrombosis [Recovered/Resolved]
  - Drug interaction [Recovered/Resolved]

NARRATIVE: CASE EVENT DATE: 20171228
